FAERS Safety Report 11809965 (Version 1)
Quarter: 2015Q4

REPORT INFORMATION
  Report Type: Spontaneous
  Country: US (occurrence: US)
  Receive Date: 20151208
  Receipt Date: 20151208
  Transmission Date: 20160305
  Serious: Yes (Other)
  Sender: FDA-Public Use
  Company Number: US-IPSEN BIOPHARMACEUTICALS, INC.-2015-09068

PATIENT
  Age: 3 Year
  Sex: Male

DRUGS (2)
  1. INCRELEX [Suspect]
     Active Substance: MECASERMIN
     Indication: PRODUCT USE ISSUE
  2. INCRELEX [Suspect]
     Active Substance: MECASERMIN
     Indication: DWARFISM
     Dosage: NOT REPORTED
     Route: 065
     Dates: start: 2014

REACTIONS (3)
  - Rash generalised [Recovering/Resolving]
  - Pneumonia [Unknown]
  - Pruritus [Unknown]

NARRATIVE: CASE EVENT DATE: 20151130
